FAERS Safety Report 24211869 (Version 1)
Quarter: 2024Q3

REPORT INFORMATION
  Report Type: Spontaneous
  Country: US (occurrence: None)
  Receive Date: 20240814
  Receipt Date: 20240814
  Transmission Date: 20241016
  Serious: Yes (Other)
  Sender: ETHYPHARM
  Company Number: US-MLMSERVICE-20240723-PI125181-00073-5

PATIENT

DRUGS (1)
  1. BUPRENORPHINE HYDROCHLORIDE\NALOXONE HYDROCHLORIDE [Suspect]
     Active Substance: BUPRENORPHINE HYDROCHLORIDE\NALOXONE HYDROCHLORIDE
     Indication: Drug use disorder

REACTIONS (2)
  - Drug withdrawal syndrome [Recovering/Resolving]
  - Condition aggravated [Recovering/Resolving]
